FAERS Safety Report 20518340 (Version 3)
Quarter: 2022Q1

REPORT INFORMATION
  Report Type: Report from Study
  Country: JP (occurrence: JP)
  Receive Date: 20220225
  Receipt Date: 20220308
  Transmission Date: 20220424
  Serious: Yes (Hospitalization, Other)
  Sender: FDA-Public Use
  Company Number: JP-CHUGAI-2022001882

PATIENT
  Age: 56 Year
  Sex: Male
  Weight: 82 kg

DRUGS (11)
  1. ATEZOLIZUMAB [Suspect]
     Active Substance: ATEZOLIZUMAB
     Indication: Neoplasm
     Dosage: 1200 MILLIGRAM, QD
     Route: 041
     Dates: start: 20211228
  2. ATEZOLIZUMAB [Suspect]
     Active Substance: ATEZOLIZUMAB
     Indication: Small intestine carcinoma
  3. URSODIOL [Concomitant]
     Active Substance: URSODIOL
  4. MIYA-BM [Concomitant]
     Active Substance: CLOSTRIDIUM BUTYRICUM SPORES STRAIN M-55
  5. REBAMIPIDE [Concomitant]
     Active Substance: REBAMIPIDE
  6. VONOPRAZAN FUMARATE [Concomitant]
     Active Substance: VONOPRAZAN FUMARATE
  7. MIROGABALIN BESYLATE [Concomitant]
     Active Substance: MIROGABALIN BESYLATE
  8. METHYLCOBALAMIN [Concomitant]
     Active Substance: METHYLCOBALAMIN
  9. MAGNESIUM OXIDE [Concomitant]
     Active Substance: MAGNESIUM OXIDE
  10. GLUTAMINE\SODIUM GUALENATE [Concomitant]
     Active Substance: GLUTAMINE\SODIUM GUALENATE
  11. CALONAL [Concomitant]
     Active Substance: ACETAMINOPHEN

REACTIONS (6)
  - Biliary tract infection [Recovering/Resolving]
  - Jaundice cholestatic [Not Recovered/Not Resolved]
  - Amylase increased [Not Recovered/Not Resolved]
  - Blood bilirubin increased [Recovering/Resolving]
  - Biliary obstruction [Unknown]
  - Intestinal obstruction [Unknown]

NARRATIVE: CASE EVENT DATE: 20220108
